FAERS Safety Report 8882052 (Version 2)
Quarter: 2013Q1

REPORT INFORMATION
  Report Type: Spontaneous
  Country: US (occurrence: US)
  Receive Date: 20121105
  Receipt Date: 20130114
  Transmission Date: 20140127
  Serious: No
  Sender: FDA-Public Use
  Company Number: US-009507513-1210USA012860

PATIENT
  Age: 24 None
  Sex: Female
  Weight: 97.51 kg

DRUGS (3)
  1. IMPLANON [Suspect]
     Indication: CONTRACEPTION
     Dosage: UNK, 3 YEARS
     Route: 059
     Dates: start: 20111221
  2. TOPIRAMATE [Concomitant]
  3. SUMATRIPTAN [Concomitant]

REACTIONS (2)
  - Metrorrhagia [Not Recovered/Not Resolved]
  - Vaginal discharge [Not Recovered/Not Resolved]
